FAERS Safety Report 4751758-3 (Version None)
Quarter: 2005Q3

REPORT INFORMATION
  Report Type: 
  Country: None (occurrence: None)
  Receive Date: 20050822
  Receipt Date: 20050809
  Transmission Date: 20060218
  Serious: Yes (Other)
  Sender: FDA-Public Use
  Company Number: 2005112496

PATIENT
  Age: 85 Year
  Sex: Male

DRUGS (1)
  1. LATANOPROST [Suspect]
     Indication: OPEN ANGLE GLAUCOMA
     Dosage: (1 IN 1 D), OPHTHALMIC
     Route: 047

REACTIONS (12)
  - BACTERIAL INFECTION [None]
  - CANDIDIASIS [None]
  - FUNGAL INFECTION [None]
  - HYPOPYON [None]
  - INCISION SITE COMPLICATION [None]
  - IRIDOCYCLITIS [None]
  - IRIS DISORDER [None]
  - ORAL CANDIDIASIS [None]
  - POST PROCEDURAL COMPLICATION [None]
  - UVEITIS [None]
  - VISUAL ACUITY REDUCED [None]
  - VITREOUS DISORDER [None]
